FAERS Safety Report 21713120 (Version 1)
Quarter: 2022Q4

REPORT INFORMATION
  Report Type: Report from Study
  Country: US (occurrence: US)
  Receive Date: 20221212
  Receipt Date: 20221212
  Transmission Date: 20230113
  Serious: No
  Sender: FDA-Public Use
  Company Number: US-ABBVIE-4187233

PATIENT
  Sex: Female

DRUGS (8)
  1. SKYRIZI [Suspect]
     Active Substance: RISANKIZUMAB-RZAA
     Indication: Psoriatic arthropathy
     Route: 058
     Dates: start: 20221005
  2. AMLODIPINE BESYLATE [Concomitant]
     Active Substance: AMLODIPINE BESYLATE
     Indication: Product used for unknown indication
  3. CARVEDILOL [Concomitant]
     Active Substance: CARVEDILOL
     Indication: Product used for unknown indication
  4. METHYLPREDNISOLONE 16 MG TABLET [Concomitant]
     Indication: Product used for unknown indication
  5. VITAMIN D3 125 MCG CAPSULE [Concomitant]
     Indication: Product used for unknown indication
  6. LATANOPROST 0.005 % DROPS [Concomitant]
     Indication: Product used for unknown indication
  7. PANTOPRAZOLE SODIUM 40 MG TABLET DR [Concomitant]
     Indication: Product used for unknown indication
  8. MUCINEX 1200 MG TAB ER 12H [Concomitant]
     Indication: Product used for unknown indication

REACTIONS (2)
  - Arthralgia [Not Recovered/Not Resolved]
  - Pain [Not Recovered/Not Resolved]

NARRATIVE: CASE EVENT DATE: 20220101
